FAERS Safety Report 11036205 (Version 2)
Quarter: 2015Q2

REPORT INFORMATION
  Report Type: Spontaneous
  Country: US (occurrence: US)
  Receive Date: 20150415
  Receipt Date: 20150525
  Transmission Date: 20150821
  Serious: No
  Sender: FDA-Public Use
  Company Number: US-JNJFOC-20121104138

PATIENT
  Age: 77 Year
  Sex: Female
  Weight: 61.24 kg

DRUGS (4)
  1. ALLOPURINOL. [Concomitant]
     Active Substance: ALLOPURINOL
     Indication: GOUT
     Route: 048
  2. LOSARTAN [Concomitant]
     Active Substance: LOSARTAN
     Indication: PRODUCT USED FOR UNKNOWN INDICATION
     Route: 065
  3. XARELTO [Suspect]
     Active Substance: RIVAROXABAN
     Indication: HIP ARTHROPLASTY
     Route: 048
     Dates: start: 20120926, end: 201210
  4. XARELTO [Suspect]
     Active Substance: RIVAROXABAN
     Indication: MUSCLE RUPTURE
     Route: 048
     Dates: start: 20120926, end: 201210

REACTIONS (4)
  - Asthenia [Not Recovered/Not Resolved]
  - Pain [Unknown]
  - Pruritus [Recovering/Resolving]
  - Urticaria [Recovering/Resolving]

NARRATIVE: CASE EVENT DATE: 2012
